FAERS Safety Report 14489875 (Version 1)
Quarter: 2018Q1

REPORT INFORMATION
  Report Type: Spontaneous
  Country: US (occurrence: US)
  Receive Date: 20180206
  Receipt Date: 20180206
  Transmission Date: 20180509
  Serious: Yes (Hospitalization)
  Sender: FDA-Public Use
  Company Number: US-ABBVIE-18K-163-2245913-00

PATIENT
  Sex: Female

DRUGS (5)
  1. CELEBREX [Concomitant]
     Active Substance: CELECOXIB
     Indication: PRODUCT USED FOR UNKNOWN INDICATION
  2. HUMIRA [Suspect]
     Active Substance: ADALIMUMAB
     Indication: HIDRADENITIS
     Route: 058
  3. VITAMIN B12 INJECTION [Concomitant]
     Indication: PRODUCT USED FOR UNKNOWN INDICATION
  4. FAMCICLOVIR. [Concomitant]
     Active Substance: FAMCICLOVIR
     Indication: PRODUCT USED FOR UNKNOWN INDICATION
  5. VITAMIN D [Concomitant]
     Active Substance: CHOLECALCIFEROL
     Indication: PRODUCT USED FOR UNKNOWN INDICATION
     Dosage: 8000 BIU

REACTIONS (14)
  - Anxiety [Unknown]
  - Pleural effusion [Unknown]
  - Fatigue [Unknown]
  - Epstein-Barr virus infection [Unknown]
  - Neuropathy peripheral [Unknown]
  - Depression [Unknown]
  - Pain [Unknown]
  - Intervertebral disc protrusion [Unknown]
  - Fungal infection [Unknown]
  - Furuncle [Unknown]
  - Cerebral fungal infection [Unknown]
  - Gait inability [Unknown]
  - Cytomegalovirus infection [Unknown]
  - Wound complication [Unknown]
